FAERS Safety Report 8095028-7 (Version None)
Quarter: 2012Q1

REPORT INFORMATION
  Report Type: 
  Country: None (occurrence: None)
  Receive Date: 20120131
  Receipt Date: 20120131
  Transmission Date: 20120608
  Serious: Yes (Other)
  Sender: FDA-Public Use
  Company Number: None

PATIENT
  Age: 52 Year
  Sex: Male
  Weight: 92.986 kg

DRUGS (5)
  1. IBUPROFEN [Concomitant]
  2. CAFFEINE CITRATE [Concomitant]
  3. BUPROPION HYDROCHLORIDE [Suspect]
     Indication: SEASONAL AFFECTIVE DISORDER
     Dosage: 1 PILL
     Route: 048
     Dates: start: 20111021, end: 20120129
  4. SUAFED [Concomitant]
  5. MUCINEX [Concomitant]

REACTIONS (2)
  - HEART RATE IRREGULAR [None]
  - PALPITATIONS [None]
